FAERS Safety Report 8051093-4 (Version None)
Quarter: 2012Q1

REPORT INFORMATION
  Report Type: 
  Country: None (occurrence: None)
  Receive Date: 20120117
  Receipt Date: 20120104
  Transmission Date: 20120608
  Serious: Yes (Death, Hospitalization)
  Sender: FDA-Public Use
  Company Number: US-MUTUAL PHARMACEUTICAL COMPANY, INC.-CLHC20120003

PATIENT
  Age: 48 Year
  Sex: Male

DRUGS (5)
  1. COLCHICINE [Suspect]
     Indication: PRODUCT USED FOR UNKNOWN INDICATION
     Route: 048
     Dates: end: 20100101
  2. ALCOHOL [Suspect]
     Route: 048
     Dates: end: 20100101
  3. CAFFEINE CITRATE [Concomitant]
     Indication: PRODUCT USED FOR UNKNOWN INDICATION
     Route: 065
     Dates: end: 20100101
  4. THC [Concomitant]
     Route: 065
     Dates: end: 20100101
  5. VENLAFAXINE [Concomitant]
     Indication: PRODUCT USED FOR UNKNOWN INDICATION
     Route: 065
     Dates: end: 20100101

REACTIONS (16)
  - VOMITING [None]
  - SINUS TACHYCARDIA [None]
  - TREMOR [None]
  - COMPLETED SUICIDE [None]
  - BLOOD UREA INCREASED [None]
  - BLOOD CREATININE INCREASED [None]
  - AGITATION [None]
  - CARDIAC ARREST [None]
  - BRADYCARDIA [None]
  - HYPERKALAEMIA [None]
  - BLOOD BICARBONATE DECREASED [None]
  - OVERDOSE [None]
  - ALCOHOL WITHDRAWAL SYNDROME [None]
  - BLOOD PH INCREASED [None]
  - HYPOTENSION [None]
  - WHITE BLOOD CELL COUNT INCREASED [None]
